FAERS Safety Report 7415351-6 (Version None)
Quarter: 2011Q2

REPORT INFORMATION
  Report Type: 
  Country: None (occurrence: None)
  Receive Date: 20110414
  Receipt Date: 20110405
  Transmission Date: 20111010
  Serious: Yes (Death)
  Sender: FDA-Public Use
  Company Number: A0919670A

PATIENT
  Age: 65 Year
  Sex: Male

DRUGS (1)
  1. ADVAIR HFA [Suspect]
     Dates: start: 20070928, end: 20100710

REACTIONS (2)
  - HYPERTENSIVE HEART DISEASE [None]
  - DEATH [None]
